FAERS Safety Report 15531108 (Version 2)
Quarter: 2018Q4

REPORT INFORMATION
  Report Type: Report from Study
  Country: FR (occurrence: FR)
  Receive Date: 20181019
  Receipt Date: 20181213
  Transmission Date: 20190205
  Serious: Yes (Death, Life-Threatening, Hospitalization)
  Sender: FDA-Public Use
  Company Number: FR-ROCHE-2198822

PATIENT
  Age: 66 Year
  Sex: Male
  Weight: 79 kg

DRUGS (12)
  1. MYCOPHENOLATE MOFETIL. [Suspect]
     Active Substance: MYCOPHENOLATE MOFETIL
     Indication: PROPHYLAXIS AGAINST GRAFT VERSUS HOST DISEASE
  2. ENDOXAN [Suspect]
     Active Substance: CYCLOPHOSPHAMIDE
     Indication: PROPHYLAXIS AGAINST GRAFT VERSUS HOST DISEASE
  3. MESNA. [Concomitant]
     Active Substance: MESNA
     Dosage: 100 MG/ML
     Route: 065
  4. MK-8228 [Suspect]
     Active Substance: LETERMOVIR
     Indication: ANTIVIRAL PROPHYLAXIS
     Dosage: MOST RECENT DOSE: 08/SEP/2018
     Route: 048
     Dates: start: 20180828
  5. SANDIMMUN [Suspect]
     Active Substance: CYCLOSPORINE
     Indication: TRANSPLANT
     Dosage: 50 MG/ML
     Route: 042
     Dates: start: 20180826, end: 20180830
  6. MYCOPHENOLATE MOFETIL. [Suspect]
     Active Substance: MYCOPHENOLATE MOFETIL
     Indication: TRANSPLANT
     Route: 042
     Dates: start: 20180826, end: 20180908
  7. SANDIMMUN [Suspect]
     Active Substance: CYCLOSPORINE
     Indication: PROPHYLAXIS AGAINST GRAFT VERSUS HOST DISEASE
  8. ENDOXAN [Suspect]
     Active Substance: CYCLOPHOSPHAMIDE
     Indication: TRANSPLANT
     Dosage: 1059 MG OR 3650 MG DAILY
     Route: 042
     Dates: start: 20180815, end: 20180825
  9. CYTARABINE EBEWE [Suspect]
     Active Substance: CYTARABINE
     Indication: ACUTE MYELOID LEUKAEMIA
     Dosage: 1 WEEK MONTHLY?MOST RECENT DOSE ON 01/MAY/2017
     Route: 042
     Dates: start: 20170128
  10. CYTARABINE EBEWE [Suspect]
     Active Substance: CYTARABINE
     Route: 041
     Dates: start: 20180506, end: 20180728
  11. FLUDARABINE [Suspect]
     Active Substance: FLUDARABINE PHOSPHATE
     Indication: ACUTE MYELOID LEUKAEMIA
     Dosage: MOST RECENT DOSE ON 19/AUG/2018
     Route: 042
     Dates: start: 20180815
  12. ZAVEDOS [Suspect]
     Active Substance: IDARUBICIN
     Indication: ACUTE MYELOID LEUKAEMIA
     Route: 041
     Dates: start: 20180505, end: 20180707

REACTIONS (5)
  - Septic shock [Fatal]
  - Cardiac failure acute [Recovered/Resolved]
  - Atrial fibrillation [Recovered/Resolved]
  - Acute kidney injury [Not Recovered/Not Resolved]
  - Product administration error [Unknown]

NARRATIVE: CASE EVENT DATE: 20180830
